FAERS Safety Report 4389643-1 (Version None)
Quarter: 2004Q2

REPORT INFORMATION
  Report Type: 
  Country: None (occurrence: None)
  Receive Date: 20040629
  Receipt Date: 20040420
  Transmission Date: 20050107
  Serious: Yes (Hospitalization)
  Sender: FDA-Public Use
  Company Number: US-JNJFOC-20040404851

PATIENT
  Age: 76 Year
  Sex: Female
  Weight: 56 kg

DRUGS (12)
  1. DURAGESIC [Suspect]
     Indication: PAIN
     Dosage: 75 UG/HR, 1 IN 72 HOUR, TRANSDERMAL
     Route: 062
     Dates: start: 20020101
  2. CARDIAZEM (DILTIAZEM HYDROCHLORIDE) TABLETS [Concomitant]
  3. NEURONTIN (GABAPENTIN) TABLETS [Concomitant]
  4. LEXAPRO (ALL OTHER THERAPEUTIC PRODUCTS) TABLETS [Concomitant]
  5. ELAVIL (AMITRIPTYLINE HYDROCHLORIDE) TABLETS [Concomitant]
  6. LASIX [Concomitant]
  7. SPIRONLACTONE (SPIRONOLACTONE) TABLETS [Concomitant]
  8. WELLBUTRIN (BUPROPION HYDROCHLORIDE) TABLETS [Concomitant]
  9. HYDROCODONE BITARTRATE [Concomitant]
  10. ADVAIR (SERETIDE MITE) INHALATION [Concomitant]
  11. PROTONIX (PANTOPRAZOLE) TABLETS [Concomitant]
  12. DIGOXIN (DIGOXIN) TABLETS [Concomitant]

REACTIONS (2)
  - ILEUS PARALYTIC [None]
  - NAUSEA [None]
